FAERS Safety Report 8853878 (Version 3)
Quarter: 2012Q4

REPORT INFORMATION
  Report Type: Report from Study
  Country: TW (occurrence: TW)
  Receive Date: 20121022
  Receipt Date: 20121219
  Transmission Date: 20130627
  Serious: Yes (Death, Life-Threatening)
  Sender: FDA-Public Use
  Company Number: TW-GENZYME-CLOF-1002364

PATIENT
  Age: 52 Year
  Sex: Male
  Weight: 60.9 kg

DRUGS (8)
  1. EVOLTRA [Suspect]
     Indication: ACUTE MYELOID LEUKAEMIA RECURRENT
     Dosage: 40 mg/m2, qd; total dose 328 mg
     Route: 065
     Dates: start: 20121010, end: 20121014
  2. ARA-C [Suspect]
     Indication: ACUTE MYELOID LEUKAEMIA RECURRENT
     Dosage: 1 g/m2, qd
     Route: 065
     Dates: start: 20121008, end: 20121012
  3. LIPOSOMAL AMPHOTERICIN B [Concomitant]
     Indication: PRODUCT USED FOR UNKNOWN INDICATION
     Dosage: 150 mg, qd
     Route: 042
  4. MOXIFLOXACIN [Concomitant]
     Indication: PRODUCT USED FOR UNKNOWN INDICATION
     Dosage: 400 mg, qd
     Route: 065
  5. TRENAM [Concomitant]
     Indication: PRODUCT USED FOR UNKNOWN INDICATION
     Dosage: 500 mg, q12hr
     Route: 065
  6. DILTIAZEM [Concomitant]
     Indication: PRODUCT USED FOR UNKNOWN INDICATION
     Dosage: 30 mg, q8hrs
     Route: 048
  7. METOCLOPRAMIDE [Concomitant]
     Indication: PRODUCT USED FOR UNKNOWN INDICATION
     Dosage: 10 mg, q12hr
     Route: 042
  8. SIMETHICONE [Concomitant]
     Indication: PRODUCT USED FOR UNKNOWN INDICATION
     Dosage: UNK
     Route: 065

REACTIONS (4)
  - Hepatic failure [Fatal]
  - Septic shock [Fatal]
  - Septic shock [Recovered/Resolved]
  - Neutropenia [Fatal]
